FAERS Safety Report 8641061 (Version 2)
Quarter: 2012Q4

REPORT INFORMATION
  Report Type: 
  Country: US (occurrence: US)
  Receive Date: 20120628
  Receipt Date: 20121109
  Transmission Date: 20130627
  Serious: Yes (Life-Threatening, Other)
  Sender: FDA-Public Use
  Company Number: US-BAYER-2012-063485

PATIENT
  Age: 18 Year
  Sex: Female
  Weight: 81.63 kg

DRUGS (2)
  1. YAZ [Suspect]
     Dosage: UNK
     Dates: start: 201009, end: 201107
  2. ADVIL [Concomitant]
     Dosage: OTC, PRN

REACTIONS (10)
  - Cholelithiasis [None]
  - Gastric disorder [None]
  - Gastroenteritis [None]
  - Abdominal pain upper [None]
  - Anxiety [None]
  - Anhedonia [None]
  - Fear [None]
  - Injury [None]
  - Emotional distress [None]
  - General physical health deterioration [None]
